FAERS Safety Report 22400023 (Version 1)
Quarter: 2023Q2

REPORT INFORMATION
  Report Type: Spontaneous
  Country: IL (occurrence: None)
  Receive Date: 20230602
  Receipt Date: 20230602
  Transmission Date: 20230722
  Serious: Yes (Hospitalization, Other)
  Sender: FDA-Public Use
  Company Number: 2023A123731

PATIENT
  Age: 29 Year
  Sex: Male

DRUGS (1)
  1. DAPAGLIFLOZIN PROPANEDIOL\METFORMIN HYDROCHLORIDE [Suspect]
     Active Substance: DAPAGLIFLOZIN PROPANEDIOL\METFORMIN HYDROCHLORIDE
     Dosage: DAPAGLIFLOZIN PROPANEDIOL 5 MG AND METFORMIN HYDROCHLORIDE 1,000 MG
     Route: 048

REACTIONS (8)
  - Intentional overdose [Unknown]
  - Hypertension [Recovering/Resolving]
  - Tachycardia [Recovering/Resolving]
  - Headache [Recovering/Resolving]
  - Vomiting [Recovering/Resolving]
  - Respiratory alkalosis [Recovering/Resolving]
  - Poisoning [Recovering/Resolving]
  - Lactic acidosis [Recovering/Resolving]
